FAERS Safety Report 16698306 (Version 1)
Quarter: 2019Q3

REPORT INFORMATION
  Report Type: Other
  Country: DE (occurrence: DE)
  Receive Date: 20190813
  Receipt Date: 20190813
  Transmission Date: 20191004
  Serious: Yes (Congenital Anomaly, Other)
  Sender: FDA-Public Use
  Company Number: DE-ALMIRALL, LLC-2019AQU000387

PATIENT

DRUGS (7)
  1. AZELEX [Suspect]
     Active Substance: AZELAIC ACID
     Dosage: 20%, UNK
     Route: 064
  2. ISLA-MOOS [Concomitant]
     Indication: BRONCHITIS
     Route: 064
  3. AZELEX [Suspect]
     Active Substance: AZELAIC ACID
     Indication: ACNE
     Dosage: 15%, UNK
     Route: 064
  4. LORATADIN [Concomitant]
     Active Substance: LORATADINE
     Indication: HYPERSENSITIVITY
     Route: 064
  5. ACETYLSALICYLIC ACID [Concomitant]
     Active Substance: ASPIRIN
     Indication: PROPHYLAXIS
     Route: 064
  6. VOMEX A [Concomitant]
     Active Substance: DIMENHYDRINATE
     Indication: GASTROENTERITIS
     Route: 064
  7. UTROGEST [Concomitant]
     Active Substance: PROGESTERONE
     Indication: LUTEAL PHASE DEFICIENCY
     Route: 064

REACTIONS (14)
  - Laryngomalacia [Not Recovered/Not Resolved]
  - Gastrooesophageal reflux disease [Not Recovered/Not Resolved]
  - Pierre Robin syndrome [Not Recovered/Not Resolved]
  - Foot deformity [Not Recovered/Not Resolved]
  - Ballismus [Recovering/Resolving]
  - Diastasis recti abdominis [Not Recovered/Not Resolved]
  - Atrial septal defect [Not Recovered/Not Resolved]
  - Foetal exposure during pregnancy [Recovered/Resolved]
  - Extrapyramidal disorder [Unknown]
  - Syndactyly [Not Recovered/Not Resolved]
  - Clinodactyly [Not Recovered/Not Resolved]
  - Hypotonia [Not Recovered/Not Resolved]
  - Dysphagia [Not Recovered/Not Resolved]
  - Dysmorphism [Unknown]

NARRATIVE: CASE EVENT DATE: 20181120
